FAERS Safety Report 19809778 (Version 1)
Quarter: 2021Q3

REPORT INFORMATION
  Report Type: Spontaneous
  Country: US (occurrence: US)
  Receive Date: 20210908
  Receipt Date: 20210908
  Transmission Date: 20211014
  Serious: No
  Sender: FDA-Public Use
  Company Number: US-ROCHE-2669850

PATIENT
  Age: 27 Year
  Weight: 59 kg

DRUGS (1)
  1. ALECENSA [Suspect]
     Active Substance: ALECTINIB HYDROCHLORIDE
     Indication: ANAPLASTIC LYMPHOMA KINASE GENE MUTATION
     Route: 065
     Dates: start: 201907, end: 201912

REACTIONS (2)
  - Pain [Unknown]
  - Neoplasm swelling [Unknown]

NARRATIVE: CASE EVENT DATE: 201912
